FAERS Safety Report 6152653-8 (Version None)
Quarter: 2009Q2

REPORT INFORMATION
  Report Type: 
  Country: None (occurrence: None)
  Receive Date: 20090413
  Receipt Date: 20090401
  Transmission Date: 20091009
  Serious: Yes (Other)
  Sender: FDA-Public Use
  Company Number: TW-ROCHE-625181

PATIENT
  Sex: Male
  Weight: 70 kg

DRUGS (3)
  1. CELLCEPT [Suspect]
     Indication: PROPHYLAXIS AGAINST TRANSPLANT REJECTION
     Route: 048
     Dates: start: 20050212
  2. TACROLIMUS [Concomitant]
     Route: 048
     Dates: start: 20050215
  3. CARDIZEM [Concomitant]
     Route: 048
     Dates: start: 20081224

REACTIONS (1)
  - TRANSPLANT REJECTION [None]
